FAERS Safety Report 16384163 (Version 1)
Quarter: 2019Q2

REPORT INFORMATION
  Report Type: Spontaneous
  Country: US (occurrence: US)
  Receive Date: 20190531
  Receipt Date: 20190531
  Transmission Date: 20190711
  Serious: Yes (Disabling)
  Sender: FDA-Public Use
  Company Number: None

PATIENT
  Age: 69 Year
  Sex: Male
  Weight: 94.5 kg

DRUGS (2)
  1. GAMUNEX-C [Suspect]
     Active Substance: HUMAN IMMUNOGLOBULIN G
     Indication: IMMUNODEFICIENCY COMMON VARIABLE
     Dosage: ?          OTHER FREQUENCY:MONTHLY;?
     Route: 041
     Dates: start: 20180629, end: 20181228
  2. GAMUNEX-C [Concomitant]
     Active Substance: HUMAN IMMUNOGLOBULIN G
     Dates: start: 20180629, end: 20181228

REACTIONS (3)
  - Muscular weakness [None]
  - Muscle tightness [None]
  - Movement disorder [None]

NARRATIVE: CASE EVENT DATE: 20180629
